FAERS Safety Report 9189706 (Version 3)
Quarter: 2013Q3

REPORT INFORMATION
  Report Type: Spontaneous
  Country: US (occurrence: US)
  Receive Date: 20130326
  Receipt Date: 20130722
  Transmission Date: 20140515
  Serious: Yes (Hospitalization)
  Sender: FDA-Public Use
  Company Number: US-BAYER-2013-037387

PATIENT
  Age: 31 Year
  Sex: Female
  Weight: 65.76 kg

DRUGS (3)
  1. YASMIN [Suspect]
     Indication: ACNE
     Dosage: UNK
     Dates: start: 2004, end: 2005
  2. PREVACID [Concomitant]
  3. TORADOL [Concomitant]

REACTIONS (3)
  - Cerebrovascular accident [None]
  - Pain [None]
  - Pain [None]
